FAERS Safety Report 23741150 (Version 1)
Quarter: 2024Q2

REPORT INFORMATION
  Report Type: Spontaneous
  Country: BR (occurrence: BR)
  Receive Date: 20240415
  Receipt Date: 20240415
  Transmission Date: 20240716
  Serious: Yes (Other)
  Sender: FDA-Public Use
  Company Number: BR-002147023-PHHY2018BR001529

PATIENT
  Sex: Female
  Weight: 59 kg

DRUGS (2)
  1. BUDESONIDE\FORMOTEROL FUMARATE [Suspect]
     Active Substance: BUDESONIDE\FORMOTEROL FUMARATE
     Indication: Asthma
     Dosage: UNK UNK, BID
     Route: 055
     Dates: start: 2009
  2. BUDESONIDE\FORMOTEROL FUMARATE [Suspect]
     Active Substance: BUDESONIDE\FORMOTEROL FUMARATE
     Indication: Lung disorder

REACTIONS (7)
  - Drug dependence [Unknown]
  - Asphyxia [Recovering/Resolving]
  - Skin disorder [Recovering/Resolving]
  - Sinusitis [Unknown]
  - Pain [Recovering/Resolving]
  - Cough [Recovering/Resolving]
  - Product availability issue [Unknown]
